FAERS Safety Report 25514186 (Version 1)
Quarter: 2025Q3

REPORT INFORMATION
  Report Type: Spontaneous
  Country: US (occurrence: US)
  Receive Date: 20250703
  Receipt Date: 20250703
  Transmission Date: 20251020
  Serious: No
  Sender: RADIUS PHARM
  Company Number: US-RADIUS HEALTH INC.-2024US010259

PATIENT
  Age: 64 Year
  Sex: Female
  Weight: 47.619 kg

DRUGS (9)
  1. TYMLOS [Suspect]
     Active Substance: ABALOPARATIDE
     Indication: Osteoporotic fracture
     Route: 058
     Dates: start: 20241129
  2. TYLENOL ARTHRITIS PAIN [Concomitant]
     Active Substance: ACETAMINOPHEN
     Indication: Product used for unknown indication
  3. METHOCARBAMOL [Concomitant]
     Active Substance: METHOCARBAMOL
     Indication: Product used for unknown indication
  4. TRAMADOL HCL [Concomitant]
     Active Substance: TRAMADOL HYDROCHLORIDE
     Indication: Product used for unknown indication
  5. PROBIOTICS NOS [Concomitant]
     Active Substance: PROBIOTICS NOS
     Indication: Product used for unknown indication
  6. VITAMIN D3 [Concomitant]
     Active Substance: CHOLECALCIFEROL
     Indication: Product used for unknown indication
  7. MENAQUINONE 6 [Concomitant]
     Active Substance: MENAQUINONE 6
     Indication: Product used for unknown indication
  8. ALGAL 900 DHA [Concomitant]
     Indication: Product used for unknown indication
  9. CALCIUM PLUS [CALCIUM;COLECALCIFEROL] [Concomitant]
     Indication: Product used for unknown indication

REACTIONS (4)
  - Back pain [Recovering/Resolving]
  - Intentional dose omission [Recovered/Resolved]
  - Muscle spasms [Unknown]
  - Laryngitis [Unknown]

NARRATIVE: CASE EVENT DATE: 20241129
